FAERS Safety Report 8955720 (Version 1)
Quarter: 2012Q4

REPORT INFORMATION
  Report Type: Spontaneous
  Country: DE (occurrence: None)
  Receive Date: 20121130
  Receipt Date: 20121130
  Transmission Date: 20130627
  Serious: Yes (Other)
  Sender: FDA-Public Use
  Company Number: 2012-7847

PATIENT

DRUGS (2)
  1. LANREOTIDE [Suspect]
     Indication: HEART RATE HIGH
     Dosage: (30 mg, 1 in 7 D)
     Route: 030
  2. LANREOTIDE [Suspect]
     Indication: DRUG USE FOR UNAPPROVED INDICATION
     Dosage: (30 mg, 1 in 7 D)
     Route: 030

REACTIONS (1)
  - Renal impairment [None]
